FAERS Safety Report 7636028-8 (Version None)
Quarter: 2011Q3

REPORT INFORMATION
  Report Type: 
  Country: None (occurrence: None)
  Receive Date: 20110726
  Receipt Date: 20110718
  Transmission Date: 20111222
  Serious: Yes (Life-Threatening, Hospitalization)
  Sender: FDA-Public Use
  Company Number: ZA-SANOFI-AVENTIS-2011SA046479

PATIENT
  Age: 60 Year
  Sex: Female

DRUGS (2)
  1. MOBIC [Concomitant]
     Dates: start: 20031101, end: 20040601
  2. ARAVA [Suspect]
     Indication: RHEUMATOID ARTHRITIS
     Route: 048
     Dates: start: 20031101, end: 20040601

REACTIONS (1)
  - RASH ERYTHEMATOUS [None]
